FAERS Safety Report 7390310-0 (Version None)
Quarter: 2011Q2

REPORT INFORMATION
  Report Type: 
  Country: None (occurrence: None)
  Receive Date: 20110401
  Receipt Date: 20110308
  Transmission Date: 20111010
  Serious: No
  Sender: FDA-Public Use
  Company Number: US-B.I. PHARMACEUTICALS,INC./RIDGEFIELD-2011-BP-07368BP

PATIENT
  Sex: Female

DRUGS (6)
  1. PRADAXA [Suspect]
     Dosage: 300 MG
     Route: 048
     Dates: start: 20110223
  2. BYSTOLIC [Concomitant]
     Indication: ATRIAL FIBRILLATION
  3. PRADAXA [Suspect]
     Indication: ATRIAL FIBRILLATION
     Dosage: 300 MG
     Route: 048
     Dates: start: 20110201, end: 20110218
  4. AMIODARONE [Concomitant]
     Indication: ATRIAL FIBRILLATION
  5. METFORMIN [Concomitant]
     Indication: DIABETES MELLITUS
  6. DIGOXIN [Concomitant]
     Indication: ATRIAL FIBRILLATION

REACTIONS (4)
  - CONTUSION [None]
  - PAIN IN EXTREMITY [None]
  - MALAISE [None]
  - ASTHENIA [None]
